FAERS Safety Report 19474460 (Version 1)
Quarter: 2021Q2

REPORT INFORMATION
  Report Type: Spontaneous
  Country: US (occurrence: US)
  Receive Date: 20210629
  Receipt Date: 20210629
  Transmission Date: 20210717
  Serious: Yes (Hospitalization, Other)
  Sender: FDA-Public Use
  Company Number: US-PFIZER INC-2021714863

PATIENT
  Age: 67 Year
  Sex: Female

DRUGS (1)
  1. IBRANCE [Suspect]
     Active Substance: PALBOCICLIB
     Dosage: 100 MG
     Dates: start: 20200215

REACTIONS (5)
  - Dizziness [Unknown]
  - Hyperhidrosis [Unknown]
  - Nausea [Unknown]
  - Syncope [Unknown]
  - Asthenia [Unknown]
